FAERS Safety Report 14577042 (Version 1)
Quarter: 2018Q1

REPORT INFORMATION
  Report Type: Spontaneous
  Country: CO (occurrence: CO)
  Receive Date: 20180227
  Receipt Date: 20180227
  Transmission Date: 20180509
  Serious: Yes (Death)
  Sender: FDA-Public Use
  Company Number: CO-ABBVIE-18S-036-2269373-00

PATIENT

DRUGS (2)
  1. SURVANTA [Suspect]
     Active Substance: BERACTANT
     Indication: RESPIRATORY DISTRESS
     Route: 039
  2. SURVANTA [Suspect]
     Active Substance: BERACTANT
     Route: 039

REACTIONS (2)
  - Drug ineffective [Not Recovered/Not Resolved]
  - Premature baby death [Fatal]

NARRATIVE: CASE EVENT DATE: 201802
